FAERS Safety Report 15604991 (Version 8)
Quarter: 2019Q2

REPORT INFORMATION
  Report Type: Spontaneous
  Country: JP (occurrence: JP)
  Receive Date: 20181112
  Receipt Date: 20190624
  Transmission Date: 20190711
  Serious: Yes (Death, Hospitalization, Other)
  Sender: FDA-Public Use
  Company Number: JP-BRISTOL-MYERS SQUIBB COMPANY-BMS-2018-044504

PATIENT
  Age: 67 Year
  Sex: Male
  Weight: 45 kg

DRUGS (5)
  1. OPDIVO [Suspect]
     Active Substance: NIVOLUMAB
     Indication: HEAD AND NECK CANCER METASTATIC
     Dosage: 130 MG, Q2WK
     Route: 041
     Dates: start: 20170720
  2. FLUOROURACIL. [Concomitant]
     Active Substance: FLUOROURACIL
     Indication: HYPOPHARYNGEAL CANCER
     Dosage: 1100 MILLIGRAM, Q6H
     Route: 065
     Dates: start: 20130325, end: 20130623
  3. OPDIVO [Suspect]
     Active Substance: NIVOLUMAB
     Indication: PRODUCT USED FOR UNKNOWN INDICATION
     Dosage: 140 MILLIGRAM, Q2WK
     Route: 041
     Dates: start: 20170914, end: 20171207
  4. ZOLEDRONIC ACID [Concomitant]
     Active Substance: ZOLEDRONIC ACID
     Indication: PRODUCT USED FOR UNKNOWN INDICATION
     Dosage: 75 ML, UNK
     Route: 041
     Dates: start: 20171012, end: 20171207
  5. DOCETAXEL. [Concomitant]
     Active Substance: DOCETAXEL
     Indication: HYPOPHARYNGEAL CANCER
     Dosage: 90 MILLIGRAM, Q6H
     Route: 065
     Dates: start: 20130325, end: 20130623

REACTIONS (5)
  - Neurogenic bladder [Recovering/Resolving]
  - Spinal compression fracture [Unknown]
  - Renal failure [Recovering/Resolving]
  - Malignant neoplasm progression [Fatal]
  - Stomatitis [Unknown]

NARRATIVE: CASE EVENT DATE: 20170914
